FAERS Safety Report 9898070 (Version 6)
Quarter: 2014Q2

REPORT INFORMATION
  Report Type: Spontaneous
  Country: US (occurrence: US)
  Receive Date: 20140214
  Receipt Date: 20140522
  Transmission Date: 20141212
  Serious: Yes (Hospitalization, Disabling, Other)
  Sender: FDA-Public Use
  Company Number: US-009507513-1203USA02920

PATIENT
  Sex: Female
  Weight: 77.98 kg

DRUGS (2)
  1. FOSAMAX [Suspect]
     Indication: OSTEOPENIA
     Dosage: 10 MG, QAM
     Route: 048
     Dates: start: 19960824, end: 2000
  2. FOSAMAX [Suspect]
     Indication: OSTEOPOROSIS
     Dosage: 70 MG, UNK
     Route: 048
     Dates: start: 2000, end: 2008

REACTIONS (53)
  - Femur fracture [Unknown]
  - Intramedullary rod insertion [Unknown]
  - Bone disorder [Unknown]
  - Bone graft [Unknown]
  - Hospitalisation [Unknown]
  - Internal fixation of fracture [Unknown]
  - Hip arthroplasty [Unknown]
  - Knee arthroplasty [Unknown]
  - Bone graft [Unknown]
  - Knee arthroplasty [Unknown]
  - Fracture nonunion [Recovering/Resolving]
  - Conjunctivitis [Unknown]
  - Osteoarthritis [Unknown]
  - Arthropathy [Unknown]
  - Sinusitis [Unknown]
  - Bronchitis [Unknown]
  - Meniscus injury [Unknown]
  - Tendonitis [Unknown]
  - Arthritis [Unknown]
  - Fatigue [Unknown]
  - Blood pressure increased [Unknown]
  - Blood pressure decreased [Unknown]
  - Alcohol use [Unknown]
  - Skin abrasion [Unknown]
  - Restless legs syndrome [Unknown]
  - Atrial fibrillation [Unknown]
  - Sleep apnoea syndrome [Unknown]
  - Macular degeneration [Unknown]
  - Heart rate irregular [Unknown]
  - Synovitis [Unknown]
  - Hypertension [Unknown]
  - Gout [Unknown]
  - Anaemia postoperative [Recovered/Resolved]
  - Liver function test abnormal [Recovered/Resolved]
  - Hyperlipidaemia [Unknown]
  - Hypertonic bladder [Unknown]
  - Appendicectomy [Unknown]
  - Tonsillectomy [Unknown]
  - Photosensitivity reaction [Unknown]
  - Arthralgia [Unknown]
  - Pain in extremity [Unknown]
  - Nausea [Unknown]
  - Musculoskeletal pain [Unknown]
  - Drug ineffective [Unknown]
  - Constipation [Unknown]
  - Anaemia postoperative [Unknown]
  - Haemorrhage [Unknown]
  - Osteoarthritis [Unknown]
  - Osteoporosis [Unknown]
  - Electrolyte imbalance [Unknown]
  - Coagulopathy [Unknown]
  - International normalised ratio increased [Unknown]
  - Arthritis [Unknown]
